FAERS Safety Report 5390446-X (Version None)
Quarter: 2007Q3

REPORT INFORMATION
  Report Type: 
  Country: None (occurrence: None)
  Receive Date: 20070718
  Receipt Date: 20070522
  Transmission Date: 20080115
  Serious: No
  Sender: FDA-Public Use
  Company Number: US-KINGPHARMUSA00001-K200700636

PATIENT

DRUGS (2)
  1. LEVOXYL [Suspect]
     Dosage: 100 MCG, UNK
  2. LEVOXYL [Suspect]
     Dosage: 125 MCG, UNK

REACTIONS (7)
  - DYSPNOEA [None]
  - ERYTHEMA [None]
  - HEART RATE INCREASED [None]
  - HEART RATE IRREGULAR [None]
  - INSOMNIA [None]
  - SKIN BURNING SENSATION [None]
  - URTICARIA [None]
